FAERS Safety Report 12729053 (Version 1)
Quarter: 2016Q3

REPORT INFORMATION
  Report Type: Spontaneous
  Country: US (occurrence: US)
  Receive Date: 20160908
  Receipt Date: 20160908
  Transmission Date: 20161109
  Serious: Yes (Disabling)
  Sender: FDA-Public Use
  Company Number: None

PATIENT
  Age: 56 Year
  Sex: Female
  Weight: 51.75 kg

DRUGS (5)
  1. XANAX [Concomitant]
     Active Substance: ALPRAZOLAM
  2. CIPROFLOXACIN HCL [Suspect]
     Active Substance: CIPROFLOXACIN HYDROCHLORIDE
     Indication: URINARY TRACT INFECTION
     Dosage: OTHER STRENGTH:;OTHER DOSE:;OTHER FREQUENCY:;OTHER ROUTE:I DID NOT TAKE THIS ONE.  GOT VALIDATION
  3. PROBIOTICS [Concomitant]
     Active Substance: PROBIOTICS NOS
  4. CIPROFLOXACIN HCL [Suspect]
     Active Substance: CIPROFLOXACIN HYDROCHLORIDE
     Indication: SINUS DISORDER
     Dosage: 20 DF TABLET TWICE A DAY ORAL
     Route: 048
     Dates: start: 20120723, end: 20120802
  5. VITAMIN C [Concomitant]
     Active Substance: ASCORBIC ACID

REACTIONS (2)
  - Pain [None]
  - Injury [None]

NARRATIVE: CASE EVENT DATE: 20121031
